FAERS Safety Report 24447090 (Version 1)
Quarter: 2024Q4

REPORT INFORMATION
  Report Type: Spontaneous
  Country: AU (occurrence: AU)
  Receive Date: 20241016
  Receipt Date: 20241016
  Transmission Date: 20250115
  Serious: Yes (Other)
  Sender: SANDOZ
  Company Number: AU-002147023-NVSC2024AU200298

PATIENT
  Sex: Female

DRUGS (2)
  1. METHYLPHENIDATE [Suspect]
     Active Substance: METHYLPHENIDATE
     Indication: Product used for unknown indication
     Dosage: 5 DOSAGE FORM (5 TABLETS)
     Route: 065
  2. RITALIN [Suspect]
     Active Substance: METHYLPHENIDATE HYDROCHLORIDE
     Indication: Product used for unknown indication
     Dosage: 5 DOSAGE FORM, QD (5 TABLETS) (10)
     Route: 065

REACTIONS (2)
  - Coeliac disease [Unknown]
  - Abdominal discomfort [Unknown]
